FAERS Safety Report 7939953-3 (Version None)
Quarter: 2011Q4

REPORT INFORMATION
  Report Type: 
  Country: None (occurrence: None)
  Receive Date: 20111125
  Receipt Date: 20111118
  Transmission Date: 20120403
  Serious: Yes (Disabling, Other)
  Sender: FDA-Public Use
  Company Number: PHEH2011US08297

PATIENT
  Sex: Male
  Weight: 38.095 kg

DRUGS (5)
  1. TRILEPTAL [Concomitant]
     Dosage: UNK UKN, BID
  2. ATARAX                             /00058403/ [Concomitant]
     Dosage: 10 MG, UNK
     Dates: start: 20110216
  3. INTIVUA [Concomitant]
     Indication: IMPULSIVE BEHAVIOUR
     Dosage: 2 MG, QD
     Route: 048
     Dates: start: 20100319
  4. FOCALIN XR [Suspect]
     Indication: ATTENTION DEFICIT/HYPERACTIVITY DISORDER
     Dosage: 40 MG, QD
     Route: 048
  5. ADDERALL 5 [Concomitant]
     Dosage: 10 MG, BID
     Dates: start: 20110331, end: 20111110

REACTIONS (2)
  - DRUG INEFFECTIVE [None]
  - DISTURBANCE IN SOCIAL BEHAVIOUR [None]
